FAERS Safety Report 7744143-3 (Version None)
Quarter: 2011Q3

REPORT INFORMATION
  Report Type: 
  Country: None (occurrence: None)
  Receive Date: 20110912
  Receipt Date: 20110831
  Transmission Date: 20111222
  Serious: Yes (Hospitalization)
  Sender: FDA-Public Use
  Company Number: US-CELGENEUS-163-21880-11064073

PATIENT
  Sex: Male
  Weight: 112.6 kg

DRUGS (26)
  1. DOXYCYCLINE HYCLATE [Concomitant]
     Indication: WOUND
     Dosage: 100 MILLIGRAM
     Route: 048
  2. BACTRIM DS [Concomitant]
     Dosage: 1 TABLET
     Route: 048
  3. REVLIMID [Suspect]
     Dosage: 25 MILLIGRAM
     Route: 048
     Dates: start: 20110815
  4. VELCADE [Concomitant]
     Route: 065
  5. LEVOTHYROXINE SODIUM [Concomitant]
     Dosage: 150 MICROGRAM
     Route: 048
  6. CIPROFLOXACIN [Concomitant]
     Dosage: 500 MILLIGRAM
     Route: 048
  7. PROCHLORPERAZINE MALEATE [Concomitant]
     Indication: NAUSEA
     Dosage: 10 MILLIGRAM
     Route: 048
  8. SIMVASTATIN [Concomitant]
     Dosage: 80 MILLIGRAM
     Route: 048
  9. FOLBIC [Concomitant]
     Route: 065
  10. ALLOPURINOL [Concomitant]
     Dosage: 300 MILLIGRAM
     Route: 048
  11. VICODIN [Concomitant]
     Dosage: 5-500MG
     Route: 065
  12. DEXAMETHASONE [Concomitant]
     Dosage: 8 MILLIGRAM
     Route: 048
  13. VALIUM [Concomitant]
     Dosage: 5 MILLIGRAM
     Route: 048
  14. FLOMAX [Concomitant]
     Dosage: .4 MILLIGRAM
     Route: 048
  15. ASPIRIN [Concomitant]
     Dosage: 81 MILLIGRAM
     Route: 048
  16. ZOVIRAX [Concomitant]
     Dosage: 400 MILLIGRAM
     Route: 048
  17. PLAVIX [Concomitant]
     Dosage: 75 MILLIGRAM
     Route: 048
  18. AVODART [Concomitant]
     Dosage: .5 MILLIGRAM
     Route: 048
  19. COLACE [Concomitant]
     Dosage: 100 MILLIGRAM
     Route: 048
  20. PRILOSEC [Concomitant]
     Dosage: 20 MILLIGRAM
     Route: 048
  21. ATENOLOL [Concomitant]
     Dosage: 50 MILLIGRAM
     Route: 048
  22. TYLENOL-500 [Concomitant]
     Route: 065
  23. ZOMETA [Concomitant]
     Dosage: 4MG/5ML
     Route: 041
     Dates: start: 20110101
  24. SENOKOT [Concomitant]
     Indication: CONSTIPATION
     Dosage: 2 TABLET
     Route: 048
  25. REVLIMID [Suspect]
     Indication: MULTIPLE MYELOMA
     Dosage: 25 MILLIGRAM
     Route: 048
     Dates: start: 20110606, end: 20110616
  26. WARFARIN SODIUM [Concomitant]
     Dosage: 3 MILLIGRAM
     Route: 048

REACTIONS (4)
  - HYPONATRAEMIA [None]
  - RENAL FAILURE ACUTE [None]
  - FALL [None]
  - ANAEMIA [None]
